FAERS Safety Report 6432976-5 (Version None)
Quarter: 2009Q4

REPORT INFORMATION
  Report Type: 
  Country: None (occurrence: None)
  Receive Date: 20091109
  Receipt Date: 20091026
  Transmission Date: 20100525
  Serious: Yes (Hospitalization)
  Sender: FDA-Public Use
  Company Number: US-ELI_LILLY_AND_COMPANY-US200910006564

PATIENT
  Sex: Female

DRUGS (3)
  1. EVISTA [Suspect]
     Dosage: UNK, UNKNOWN
     Route: 065
  2. FORTEO [Suspect]
     Dosage: UNK, UNKNOWN
     Route: 065
  3. CALCIUM [Concomitant]
     Dosage: UNK, UNKNOWN
     Route: 065

REACTIONS (10)
  - AMNESIA [None]
  - DRUG INEFFECTIVE [None]
  - FEELING ABNORMAL [None]
  - LACRIMATION INCREASED [None]
  - MACULAR DEGENERATION [None]
  - NAUSEA [None]
  - OSTEOPOROSIS [None]
  - PAIN [None]
  - RHINORRHOEA [None]
  - SPINAL COMPRESSION FRACTURE [None]
